FAERS Safety Report 16714685 (Version 1)
Quarter: 2019Q3

REPORT INFORMATION
  Report Type: Spontaneous
  Country: US (occurrence: US)
  Receive Date: 20190819
  Receipt Date: 20190819
  Transmission Date: 20191004
  Serious: No
  Sender: FDA-Public Use
  Company Number: US-MYLANLABS-2019M1062379

PATIENT
  Sex: Female
  Weight: 100 kg

DRUGS (2)
  1. LIDOCAINE PATCH [Suspect]
     Active Substance: LIDOCAINE
     Indication: SCIATICA
     Dosage: 1 DOSAGE FORM, BID
     Route: 003
     Dates: start: 20190627
  2. LIDOCAINE PATCH [Suspect]
     Active Substance: LIDOCAINE
     Indication: NEURALGIA

REACTIONS (4)
  - Product quality issue [Recovering/Resolving]
  - Product use in unapproved indication [Unknown]
  - Product adhesion issue [Recovering/Resolving]
  - Application site laceration [Recovering/Resolving]
